FAERS Safety Report 18608669 (Version 1)
Quarter: 2020Q4

REPORT INFORMATION
  Report Type: Other
  Country: TR (occurrence: TR)
  Receive Date: 20201213
  Receipt Date: 20201213
  Transmission Date: 20210114
  Serious: Yes (Life-Threatening, Hospitalization, Other)
  Sender: FDA-Public Use
  Company Number: TR-DEXPHARM-20201080

PATIENT
  Sex: Female

DRUGS (9)
  1. RAMIPRIL. [Concomitant]
     Active Substance: RAMIPRIL
  2. ASPIRIN. [Concomitant]
     Active Substance: ASPIRIN
  3. ASPIRIN. [Concomitant]
     Active Substance: ASPIRIN
  4. ATROPIN [Concomitant]
     Active Substance: ATROPINE
  5. ENOXAPARIN [Concomitant]
     Active Substance: ENOXAPARIN
  6. DICLOFENAC SODIUM. [Suspect]
     Active Substance: DICLOFENAC SODIUM
  7. MORPHINE [Concomitant]
     Active Substance: MORPHINE
  8. DILTIAZEM. [Concomitant]
     Active Substance: DILTIAZEM
  9. CLOPIDOGREL [Concomitant]
     Active Substance: CLOPIDOGREL BISULFATE

REACTIONS (1)
  - Kounis syndrome [Recovered/Resolved]
